FAERS Safety Report 24178271 (Version 29)
Quarter: 2025Q3

REPORT INFORMATION
  Report Type: Spontaneous
  Country: CN (occurrence: CN)
  Receive Date: 20240806
  Receipt Date: 20250821
  Transmission Date: 20251020
  Serious: Yes (Other)
  Sender: PFIZER
  Company Number: CN-PFIZER INC-PV202400079200

PATIENT
  Age: 13 Year
  Sex: Male

DRUGS (43)
  1. BENEFIX [Suspect]
     Active Substance: COAGULATION FACTOR IX RECOMBINANT HUMAN\ISOPROPYL ALCOHOL
     Indication: Factor IX deficiency
     Route: 042
     Dates: start: 20230920, end: 20230929
  2. BENEFIX [Suspect]
     Active Substance: COAGULATION FACTOR IX RECOMBINANT HUMAN\ISOPROPYL ALCOHOL
     Route: 058
     Dates: start: 20230920, end: 20231008
  3. BENEFIX [Suspect]
     Active Substance: COAGULATION FACTOR IX RECOMBINANT HUMAN\ISOPROPYL ALCOHOL
     Route: 042
     Dates: start: 20231025
  4. BENEFIX [Suspect]
     Active Substance: COAGULATION FACTOR IX RECOMBINANT HUMAN\ISOPROPYL ALCOHOL
     Dosage: 2000 IU, 1X/DAY
     Route: 042
     Dates: start: 20231117
  5. BENEFIX [Suspect]
     Active Substance: COAGULATION FACTOR IX RECOMBINANT HUMAN\ISOPROPYL ALCOHOL
     Dosage: 1500 IU, 2X/DAY
     Route: 042
     Dates: start: 20231213
  6. BENEFIX [Suspect]
     Active Substance: COAGULATION FACTOR IX RECOMBINANT HUMAN\ISOPROPYL ALCOHOL
     Dosage: 2500 IU, 1X/DAY
     Route: 042
     Dates: start: 20240401
  7. BENEFIX [Suspect]
     Active Substance: COAGULATION FACTOR IX RECOMBINANT HUMAN\ISOPROPYL ALCOHOL
     Dosage: 2000 IU, 1X/DAY
     Route: 042
     Dates: start: 20240517
  8. BENEFIX [Suspect]
     Active Substance: COAGULATION FACTOR IX RECOMBINANT HUMAN\ISOPROPYL ALCOHOL
     Dosage: 1000 IU, 1X/DAY
     Route: 042
     Dates: start: 20240517
  9. BENEFIX [Suspect]
     Active Substance: COAGULATION FACTOR IX RECOMBINANT HUMAN\ISOPROPYL ALCOHOL
     Dosage: 2000 IU, 1X/DAY
     Route: 042
     Dates: start: 20240615
  10. BENEFIX [Suspect]
     Active Substance: COAGULATION FACTOR IX RECOMBINANT HUMAN\ISOPROPYL ALCOHOL
     Dosage: 2000 IU, 1X/DAY
     Route: 042
     Dates: start: 20240626
  11. BENEFIX [Suspect]
     Active Substance: COAGULATION FACTOR IX RECOMBINANT HUMAN\ISOPROPYL ALCOHOL
     Dosage: 2000 IU, 1X/DAY
     Route: 042
     Dates: start: 20240629
  12. BENEFIX [Suspect]
     Active Substance: COAGULATION FACTOR IX RECOMBINANT HUMAN\ISOPROPYL ALCOHOL
     Dosage: 3000 IU, 1X/DAY
     Route: 042
     Dates: start: 20240724
  13. BENEFIX [Suspect]
     Active Substance: COAGULATION FACTOR IX RECOMBINANT HUMAN\ISOPROPYL ALCOHOL
     Dosage: 3000 IU, 1X/DAY
     Route: 042
     Dates: start: 20240730
  14. BENEFIX [Suspect]
     Active Substance: COAGULATION FACTOR IX RECOMBINANT HUMAN\ISOPROPYL ALCOHOL
     Dosage: 3000 IU, 1X/DAY
     Route: 042
     Dates: start: 20240816
  15. BENEFIX [Suspect]
     Active Substance: COAGULATION FACTOR IX RECOMBINANT HUMAN\ISOPROPYL ALCOHOL
     Dosage: 2500 IU, 1X/DAY
     Route: 042
     Dates: start: 20240831
  16. BENEFIX [Suspect]
     Active Substance: COAGULATION FACTOR IX RECOMBINANT HUMAN\ISOPROPYL ALCOHOL
     Dosage: 3000 IU, 1X/DAY
     Route: 042
     Dates: start: 20240914
  17. BENEFIX [Suspect]
     Active Substance: COAGULATION FACTOR IX RECOMBINANT HUMAN\ISOPROPYL ALCOHOL
     Dosage: 3000 IU, 1X/DAY
     Route: 042
     Dates: start: 20240926
  18. BENEFIX [Suspect]
     Active Substance: COAGULATION FACTOR IX RECOMBINANT HUMAN\ISOPROPYL ALCOHOL
     Dosage: 3000 IU, 1X/DAY
     Route: 042
     Dates: start: 20240930
  19. BENEFIX [Suspect]
     Active Substance: COAGULATION FACTOR IX RECOMBINANT HUMAN\ISOPROPYL ALCOHOL
     Dosage: 3000 IU, 1X/DAY
     Route: 042
     Dates: start: 20241014
  20. BENEFIX [Suspect]
     Active Substance: COAGULATION FACTOR IX RECOMBINANT HUMAN\ISOPROPYL ALCOHOL
     Dosage: 3000 IU, 1X/DAY
     Route: 042
     Dates: start: 20241024
  21. BENEFIX [Suspect]
     Active Substance: COAGULATION FACTOR IX RECOMBINANT HUMAN\ISOPROPYL ALCOHOL
     Dosage: 3000 IU, 1X/DAY
     Route: 042
     Dates: start: 20241028
  22. BENEFIX [Suspect]
     Active Substance: COAGULATION FACTOR IX RECOMBINANT HUMAN\ISOPROPYL ALCOHOL
     Dosage: 3000 IU, 1X/DAY
     Route: 042
     Dates: start: 20241030
  23. BENEFIX [Suspect]
     Active Substance: COAGULATION FACTOR IX RECOMBINANT HUMAN\ISOPROPYL ALCOHOL
     Dosage: 3000 IU, 1X/DAY
     Route: 042
     Dates: start: 20241105
  24. BENEFIX [Suspect]
     Active Substance: COAGULATION FACTOR IX RECOMBINANT HUMAN\ISOPROPYL ALCOHOL
     Dosage: 1000 IU, 1X/DAY
     Route: 042
     Dates: start: 20241109
  25. BENEFIX [Suspect]
     Active Substance: COAGULATION FACTOR IX RECOMBINANT HUMAN\ISOPROPYL ALCOHOL
     Dosage: 2000 IU, 1X/DAY
     Route: 042
     Dates: start: 20241109
  26. BENEFIX [Suspect]
     Active Substance: COAGULATION FACTOR IX RECOMBINANT HUMAN\ISOPROPYL ALCOHOL
     Dosage: 3000 IU, 1X/DAY
     Route: 042
     Dates: start: 20241123
  27. BENEFIX [Suspect]
     Active Substance: COAGULATION FACTOR IX RECOMBINANT HUMAN\ISOPROPYL ALCOHOL
     Dosage: 3000 IU, 1X/DAY
     Route: 042
     Dates: start: 20241129
  28. BENEFIX [Suspect]
     Active Substance: COAGULATION FACTOR IX RECOMBINANT HUMAN\ISOPROPYL ALCOHOL
     Dosage: 3000 IU, 1X/DAY
     Route: 042
     Dates: start: 20241206
  29. BENEFIX [Suspect]
     Active Substance: COAGULATION FACTOR IX RECOMBINANT HUMAN\ISOPROPYL ALCOHOL
     Dosage: 3000 IU, 1X/DAY
     Route: 042
     Dates: start: 20241217
  30. BENEFIX [Suspect]
     Active Substance: COAGULATION FACTOR IX RECOMBINANT HUMAN\ISOPROPYL ALCOHOL
     Dosage: 3000 IU, 1X/DAY
     Route: 042
     Dates: start: 20241223
  31. BENEFIX [Suspect]
     Active Substance: COAGULATION FACTOR IX RECOMBINANT HUMAN\ISOPROPYL ALCOHOL
     Dosage: 3000 IU, 1X/DAY
     Route: 042
     Dates: start: 20241227
  32. BENEFIX [Suspect]
     Active Substance: COAGULATION FACTOR IX RECOMBINANT HUMAN\ISOPROPYL ALCOHOL
     Dosage: 3000 IU, 1X/DAY
     Route: 042
     Dates: start: 20241231
  33. BENEFIX [Suspect]
     Active Substance: COAGULATION FACTOR IX RECOMBINANT HUMAN\ISOPROPYL ALCOHOL
     Dosage: 3000 IU, 1X/DAY
     Route: 042
     Dates: start: 20250303
  34. BENEFIX [Suspect]
     Active Substance: COAGULATION FACTOR IX RECOMBINANT HUMAN\ISOPROPYL ALCOHOL
     Dosage: 3000 IU, 1X/DAY
     Route: 042
     Dates: start: 20250307
  35. BENEFIX [Suspect]
     Active Substance: COAGULATION FACTOR IX RECOMBINANT HUMAN\ISOPROPYL ALCOHOL
     Dosage: 3000 IU, 1X/DAY
     Route: 042
     Dates: start: 20250314
  36. BENEFIX [Suspect]
     Active Substance: COAGULATION FACTOR IX RECOMBINANT HUMAN\ISOPROPYL ALCOHOL
     Dosage: 3000 IU, 1X/DAY
     Route: 042
     Dates: start: 20250318
  37. BENEFIX [Suspect]
     Active Substance: COAGULATION FACTOR IX RECOMBINANT HUMAN\ISOPROPYL ALCOHOL
     Dosage: 3000 IU, 1X/DAY
     Route: 042
     Dates: start: 20250331
  38. BENEFIX [Suspect]
     Active Substance: COAGULATION FACTOR IX RECOMBINANT HUMAN\ISOPROPYL ALCOHOL
     Dosage: 3000 IU, 1X/DAY
     Route: 042
     Dates: start: 20250408
  39. BENEFIX [Suspect]
     Active Substance: COAGULATION FACTOR IX RECOMBINANT HUMAN\ISOPROPYL ALCOHOL
     Dosage: 3000 IU, 1X/DAY
     Route: 042
     Dates: start: 20250419
  40. BENEFIX [Suspect]
     Active Substance: COAGULATION FACTOR IX RECOMBINANT HUMAN\ISOPROPYL ALCOHOL
     Dosage: 3000 IU, 1X/DAY
     Route: 042
     Dates: start: 20250424
  41. BENEFIX [Suspect]
     Active Substance: COAGULATION FACTOR IX RECOMBINANT HUMAN\ISOPROPYL ALCOHOL
     Indication: Factor IX deficiency
     Dosage: 3.9 IU, 1X/DAY
     Route: 040
     Dates: start: 20250525
  42. BENEFIX [Suspect]
     Active Substance: COAGULATION FACTOR IX RECOMBINANT HUMAN\ISOPROPYL ALCOHOL
     Indication: Factor IX deficiency
     Dosage: 8 IU, 1X/DAY
     Route: 040
     Dates: start: 20250624
  43. BENEFIX [Suspect]
     Active Substance: COAGULATION FACTOR IX RECOMBINANT HUMAN\ISOPROPYL ALCOHOL
     Dosage: 8 IU, 1X/DAY
     Route: 040
     Dates: start: 20250630

REACTIONS (65)
  - Muscle haemorrhage [Unknown]
  - Contusion [Unknown]
  - Skin haemorrhage [Unknown]
  - Soft tissue haemorrhage [Unknown]
  - Foot fracture [Unknown]
  - Muscle haemorrhage [Unknown]
  - Increased tendency to bruise [Unknown]
  - Haemorrhage subcutaneous [Unknown]
  - Soft tissue haemorrhage [Unknown]
  - Increased tendency to bruise [Unknown]
  - Soft tissue haemorrhage [Unknown]
  - Haemorrhage subcutaneous [Unknown]
  - Increased tendency to bruise [Unknown]
  - Soft tissue haemorrhage [Unknown]
  - Haemorrhage subcutaneous [Unknown]
  - Increased tendency to bruise [Unknown]
  - Soft tissue haemorrhage [Unknown]
  - Haemorrhage subcutaneous [Unknown]
  - Increased tendency to bruise [Unknown]
  - Soft tissue haemorrhage [Unknown]
  - Haemorrhage subcutaneous [Unknown]
  - Increased tendency to bruise [Unknown]
  - Soft tissue haemorrhage [Unknown]
  - Haemorrhage subcutaneous [Unknown]
  - Increased tendency to bruise [Unknown]
  - Soft tissue haemorrhage [Unknown]
  - Haemorrhage subcutaneous [Unknown]
  - Increased tendency to bruise [Unknown]
  - Haemorrhage subcutaneous [Unknown]
  - Soft tissue haemorrhage [Unknown]
  - Increased tendency to bruise [Unknown]
  - Soft tissue haemorrhage [Unknown]
  - Haemorrhage subcutaneous [Unknown]
  - Increased tendency to bruise [Unknown]
  - Soft tissue haemorrhage [Unknown]
  - Haemorrhage subcutaneous [Unknown]
  - Increased tendency to bruise [Unknown]
  - Soft tissue haemorrhage [Unknown]
  - Haemorrhage subcutaneous [Unknown]
  - Soft tissue haemorrhage [Unknown]
  - Increased tendency to bruise [Unknown]
  - Soft tissue haemorrhage [Unknown]
  - Increased tendency to bruise [Unknown]
  - Soft tissue haemorrhage [Unknown]
  - Increased tendency to bruise [Unknown]
  - Soft tissue haemorrhage [Unknown]
  - Increased tendency to bruise [Unknown]
  - Soft tissue haemorrhage [Unknown]
  - Increased tendency to bruise [Unknown]
  - Soft tissue haemorrhage [Unknown]
  - Increased tendency to bruise [Unknown]
  - Haemarthrosis [Unknown]
  - Increased tendency to bruise [Unknown]
  - Haemarthrosis [Unknown]
  - Internal haemorrhage [Unknown]
  - Contusion [Unknown]
  - Fall [Unknown]
  - Joint swelling [Unknown]
  - Injury [Unknown]
  - Joint effusion [Unknown]
  - Arthralgia [Unknown]
  - Joint swelling [Unknown]
  - Ligament sprain [Unknown]
  - Ligament injury [Unknown]
  - Off label use [Unknown]

NARRATIVE: CASE EVENT DATE: 20230920
